FAERS Safety Report 22659764 (Version 1)
Quarter: 2023Q2

REPORT INFORMATION
  Report Type: Report from Study
  Country: FR (occurrence: FR)
  Receive Date: 20230630
  Receipt Date: 20230630
  Transmission Date: 20230722
  Serious: Yes (Hospitalization)
  Sender: FDA-Public Use
  Company Number: FR-SERVIER-S23007030

PATIENT

DRUGS (6)
  1. PEGASPARGASE [Suspect]
     Active Substance: PEGASPARGASE
     Indication: Acute lymphocytic leukaemia
     Dosage: 690 [IU], D8, D36, D64
     Route: 042
     Dates: start: 20200212, end: 20200430
  2. METHOTREXATE [Suspect]
     Active Substance: METHOTREXATE
     Indication: Acute lymphocytic leukaemia
     Dosage: 42 MG, D1-D28
     Route: 048
     Dates: start: 20200204, end: 20200311
  3. METHOTREXATE [Suspect]
     Active Substance: METHOTREXATE
     Dosage: 10 MG, D2, D30
     Route: 037
     Dates: start: 20200205, end: 20200313
  4. DEXAMETHASONE [Suspect]
     Active Substance: DEXAMETHASONE
     Indication: Acute lymphocytic leukaemia
     Dosage: 17.5 MG, D1-D5, D29-D33
     Route: 048
     Dates: start: 20200204, end: 20200316
  5. VINCRISTINE [Suspect]
     Active Substance: VINCRISTINE
     Indication: Acute lymphocytic leukaemia
     Dosage: 0.8 MG, D1, D8, D29, D36
     Route: 042
     Dates: start: 20200204, end: 20200319
  6. MERCAPTOPURINE [Suspect]
     Active Substance: MERCAPTOPURINE
     Indication: Acute lymphocytic leukaemia
     Dosage: 588 MG, D1-D21, D29-D49
     Route: 048
     Dates: start: 20200204, end: 20200322

REACTIONS (2)
  - Febrile bone marrow aplasia [Recovered/Resolved]
  - Vascular device infection [Recovered/Resolved]

NARRATIVE: CASE EVENT DATE: 20200320
